FAERS Safety Report 4513173-7 (Version None)
Quarter: 2004Q4

REPORT INFORMATION
  Report Type: 
  Country: None (occurrence: None)
  Receive Date: 20041124
  Receipt Date: 20041111
  Transmission Date: 20050328
  Serious: Yes (Death)
  Sender: FDA-Public Use
  Company Number: HQWYE393911NOV04

PATIENT

DRUGS (3)
  1. CORDARONE [Suspect]
     Indication: VENTRICULAR TACHYCARDIA
     Dosage: ONE DOSE, INTRAVENOUS
     Route: 042
  2. CORDARONE [Suspect]
     Dosage: ORAL/^SOME TIME^
     Route: 048
  3. COUMADIN [Suspect]
     Dosage: ^SOME TIME^

REACTIONS (2)
  - ACUTE RESPIRATORY DISTRESS SYNDROME [None]
  - INTERNATIONAL NORMALISED RATIO INCREASED [None]
